FAERS Safety Report 9372237 (Version 1)
Quarter: 2013Q2

REPORT INFORMATION
  Report Type: Spontaneous
  Country: CA (occurrence: CA)
  Receive Date: 20130627
  Receipt Date: 20130627
  Transmission Date: 20140414
  Serious: Yes (Other)
  Sender: FDA-Public Use
  Company Number: CA-BAYER-2013-076720

PATIENT
  Sex: Female

DRUGS (1)
  1. ASPIRIN 81MG [Suspect]
     Dosage: UNK

REACTIONS (1)
  - Transient ischaemic attack [None]
